FAERS Safety Report 19647637 (Version 6)
Quarter: 2023Q4

REPORT INFORMATION
  Report Type: Report from Study
  Country: TR (occurrence: TR)
  Receive Date: 20210802
  Receipt Date: 20231009
  Transmission Date: 20240110
  Serious: Yes (Death, Hospitalization)
  Sender: FDA-Public Use
  Company Number: TR-PFIZER INC-202100935794

PATIENT
  Age: 62 Year
  Sex: Female
  Weight: 65 kg

DRUGS (4)
  1. CARBOPLATIN [Suspect]
     Active Substance: CARBOPLATIN
     Indication: Non-small cell lung cancer
     Dosage: REGIMEN #1, AUC 5 MG/ML X MIN Q3W
     Route: 042
     Dates: start: 20210525, end: 20210706
  2. CARBOPLATIN [Suspect]
     Active Substance: CARBOPLATIN
     Dosage: REGIMEN #2, AUC 3.75 MG/ML X MIN Q3W
     Route: 042
     Dates: start: 20210730
  3. PEMETREXED [Suspect]
     Active Substance: PEMETREXED
     Indication: Non-small cell lung cancer
     Dosage: 500 MILLIGRAM/SQ. METER, Q3W
     Route: 042
     Dates: start: 20210525
  4. INVESTIGATIONAL PRODUCT [Suspect]
     Active Substance: INVESTIGATIONAL PRODUCT
     Indication: Non-small cell lung cancer
     Dosage: UNK, EVERY 3 WEEKS
     Route: 042
     Dates: start: 20210525

REACTIONS (1)
  - Pneumonia [Fatal]

NARRATIVE: CASE EVENT DATE: 20210709
